FAERS Safety Report 8319186-1 (Version None)
Quarter: 2012Q2

REPORT INFORMATION
  Report Type: 
  Country: None (occurrence: None)
  Receive Date: 20120426
  Receipt Date: 20120426
  Transmission Date: 20120825
  Serious: Yes (Death)
  Sender: FDA-Public Use
  Company Number: None

PATIENT
  Age: 52 Year
  Sex: Female
  Weight: 81.4 kg

DRUGS (7)
  1. TCZ [Suspect]
     Indication: RHEUMATOID ARTHRITIS
     Dosage: 8MG/KG~800MG G/M IV 10/22-G/M IV
     Route: 042
  2. PREVACID [Concomitant]
  3. DILAUDID [Concomitant]
  4. AMBEREN [Concomitant]
  5. PREDNISONE [Concomitant]
  6. LIPITOR [Concomitant]
  7. SYMBICORT [Concomitant]

REACTIONS (5)
  - DIARRHOEA [None]
  - GASTROINTESTINAL PERFORATION [None]
  - GASTROINTESTINAL HAEMORRHAGE [None]
  - SEPSIS [None]
  - OEDEMA [None]
